FAERS Safety Report 24711190 (Version 1)
Quarter: 2024Q4

REPORT INFORMATION
  Report Type: Spontaneous
  Country: CO (occurrence: CO)
  Receive Date: 20241209
  Receipt Date: 20241209
  Transmission Date: 20250115
  Serious: Yes (Life-Threatening, Hospitalization, Other)
  Sender: Steriscience PTE
  Company Number: CO-STERISCIENCE B.V.-2024-ST-002063

PATIENT
  Sex: Female

DRUGS (6)
  1. LABETALOL [Suspect]
     Active Substance: LABETALOL
     Indication: Hypertensive crisis
     Dosage: UNK
     Route: 064
  2. LABETALOL [Suspect]
     Active Substance: LABETALOL
     Dosage: UNK
     Route: 065
  3. MIDAZOLAM [Suspect]
     Active Substance: MIDAZOLAM
     Indication: Product used for unknown indication
     Dosage: UNK
     Route: 064
  4. SODIUM NITROPRUSSIDE [Suspect]
     Active Substance: SODIUM NITROPRUSSIDE
     Indication: Hypertensive crisis
     Dosage: UNK
     Route: 064
  5. MAGNESIUM SULFATE [Suspect]
     Active Substance: MAGNESIUM SULFATE
     Indication: Hypertensive crisis
     Dosage: UNK
     Route: 064
  6. PROPOFOL [Suspect]
     Active Substance: PROPOFOL
     Indication: Product used for unknown indication
     Dosage: UNK
     Route: 064

REACTIONS (5)
  - Hypotonia neonatal [None]
  - Premature baby [Unknown]
  - Bradycardia neonatal [None]
  - Neonatal respiratory depression [None]
  - Foetal exposure during pregnancy [Unknown]
